FAERS Safety Report 9805096 (Version 1)
Quarter: 2014Q1

REPORT INFORMATION
  Report Type: Spontaneous
  Country: US (occurrence: US)
  Receive Date: 20140109
  Receipt Date: 20140109
  Transmission Date: 20141002
  Serious: No
  Sender: FDA-Public Use
  Company Number: US-BIOGENIDEC-2014BI001892

PATIENT
  Age: 39 Year
  Sex: Female

DRUGS (1)
  1. AVONEX [Suspect]
     Indication: MULTIPLE SCLEROSIS
     Route: 030
     Dates: start: 20010209

REACTIONS (4)
  - Adverse drug reaction [Recovered/Resolved]
  - Injection site erythema [Recovered/Resolved]
  - Injection site irritation [Recovered/Resolved]
  - Hypersensitivity [Recovered/Resolved]
